FAERS Safety Report 4372252-8 (Version None)
Quarter: 2004Q2

REPORT INFORMATION
  Report Type: 
  Country: None (occurrence: None)
  Receive Date: 20040602
  Receipt Date: 20040602
  Transmission Date: 20050107
  Serious: Yes (Other)
  Sender: FDA-Public Use
  Company Number: None

PATIENT
  Sex: Female

DRUGS (1)
  1. REPRONEX [Suspect]
     Indication: INFERTILITY
     Dosage: 300 IU QD X 4 DAYS
     Dates: start: 20040522, end: 20040525

REACTIONS (6)
  - INJECTION SITE ERYTHEMA [None]
  - INJECTION SITE REACTION [None]
  - INJECTION SITE WARMTH [None]
  - MALAISE [None]
  - RASH [None]
  - URTICARIA [None]
